FAERS Safety Report 12801173 (Version 1)
Quarter: 2016Q4

REPORT INFORMATION
  Report Type: Spontaneous
  Country: US (occurrence: US)
  Receive Date: 20161003
  Receipt Date: 20161003
  Transmission Date: 20170207
  Serious: Yes (Hospitalization)
  Sender: FDA-Public Use
  Company Number: US-AMGEN-USASP2016133205

PATIENT
  Age: 61 Year
  Sex: Female

DRUGS (1)
  1. NEULASTA [Suspect]
     Active Substance: PEGFILGRASTIM
     Indication: PRODUCT USED FOR UNKNOWN INDICATION
     Dosage: UNK
     Route: 065

REACTIONS (9)
  - Hypoaesthesia [Unknown]
  - Skin discolouration [Unknown]
  - Fine motor skill dysfunction [Unknown]
  - Decreased appetite [Unknown]
  - Skin exfoliation [Unknown]
  - Wrong technique in product usage process [Unknown]
  - Oedema peripheral [Unknown]
  - Nail discolouration [Unknown]
  - Dark circles under eyes [Unknown]
